FAERS Safety Report 6520279-X (Version None)
Quarter: 2009Q4

REPORT INFORMATION
  Report Type: 
  Country: None (occurrence: None)
  Receive Date: 20091229
  Receipt Date: 20091219
  Transmission Date: 20100525
  Serious: Yes (Hospitalization)
  Sender: FDA-Public Use
  Company Number: ES-NOVOPROD-287083

PATIENT
  Age: 33 Year
  Sex: Female
  Weight: 68 kg

DRUGS (5)
  1. LEVEMIR [Suspect]
     Indication: TYPE 1 DIABETES MELLITUS
     Dosage: 42 UNK, QD
     Route: 058
  2. NOVOLOG [Suspect]
     Indication: TYPE 1 DIABETES MELLITUS
     Dosage: 30 UNK, QD
     Route: 058
  3. FOLIC ACID [Concomitant]
     Dosage: 400 UG, QD
  4. VITAMIN B12                        /00056201/ [Concomitant]
     Dosage: 2 UG, QD
  5. POTASSIUM IODIDE [Concomitant]
     Dosage: 300 UG, QD

REACTIONS (2)
  - DRUG EXPOSURE DURING PREGNANCY [None]
  - PREGNANCY INDUCED HYPERTENSION [None]
